FAERS Safety Report 17694216 (Version 4)
Quarter: 2020Q2

REPORT INFORMATION
  Report Type: Spontaneous
  Country: US (occurrence: US)
  Receive Date: 20200422
  Receipt Date: 20200624
  Transmission Date: 20200714
  Serious: No
  Sender: FDA-Public Use
  Company Number: US-009507513-2004USA004663

PATIENT
  Age: 60 Year
  Sex: Female

DRUGS (11)
  1. ALLEGRA [Concomitant]
     Active Substance: FEXOFENADINE HYDROCHLORIDE
  2. CITALOPRAM [Concomitant]
     Active Substance: CITALOPRAM HYDROBROMIDE
  3. NASACORT [Suspect]
     Active Substance: TRIAMCINOLONE ACETONIDE
     Dosage: UNK
     Dates: start: 202004
  4. LORAZEPAM. [Concomitant]
     Active Substance: LORAZEPAM
  5. SYNTHROID [Concomitant]
     Active Substance: LEVOTHYROXINE SODIUM
  6. NASONEX [Suspect]
     Active Substance: MOMETASONE FUROATE
     Indication: PROPHYLAXIS
     Dosage: 2 SPRAY EACH NOSTRIL DAILY
     Route: 045
     Dates: start: 201004
  7. NASONEX [Suspect]
     Active Substance: MOMETASONE FUROATE
     Dosage: 2 SPRAY EACH NOSTRIL DAILY
     Route: 045
     Dates: start: 202004
  8. FLONASE [Suspect]
     Active Substance: FLUTICASONE PROPIONATE
     Dosage: UNK
     Route: 045
     Dates: start: 202004
  9. ADVAIR HFA [Concomitant]
     Active Substance: FLUTICASONE PROPIONATE\SALMETEROL XINAFOATE
  10. PROVENTIL [Concomitant]
     Active Substance: ALBUTEROL
  11. RAMIPRIL. [Concomitant]
     Active Substance: RAMIPRIL

REACTIONS (7)
  - Product quality issue [Unknown]
  - Sinus disorder [Not Recovered/Not Resolved]
  - Product use in unapproved indication [Unknown]
  - Breast conserving surgery [Unknown]
  - Drug ineffective [Unknown]
  - Incorrect dose administered by product [Unknown]
  - Poor quality device used [Unknown]

NARRATIVE: CASE EVENT DATE: 201004
